FAERS Safety Report 14909951 (Version 1)
Quarter: 2018Q2

REPORT INFORMATION
  Report Type: Spontaneous
  Country: US (occurrence: US)
  Receive Date: 20180517
  Receipt Date: 20180517
  Transmission Date: 20180711
  Serious: No
  Sender: FDA-Public Use
  Company Number: US-TARO-2018TAR00202

PATIENT
  Age: 5 Year
  Sex: Female

DRUGS (1)
  1. TOPICORT [Suspect]
     Active Substance: DESOXIMETASONE
     Dosage: UNK UNK, ONCE
     Route: 045
     Dates: start: 20180306, end: 20180306

REACTIONS (3)
  - Wrong drug administered [Recovered/Resolved]
  - Accidental exposure to product by child [Recovered/Resolved]
  - Nasal discomfort [Not Recovered/Not Resolved]

NARRATIVE: CASE EVENT DATE: 20180306
